FAERS Safety Report 8016642-0 (Version None)
Quarter: 2011Q4

REPORT INFORMATION
  Report Type: 
  Country: None (occurrence: None)
  Receive Date: 20111231
  Receipt Date: 20111209
  Transmission Date: 20120403
  Serious: No
  Sender: FDA-Public Use
  Company Number: US-ROXANE LABORATORIES, INC.-2011-RO-01632RO

PATIENT
  Sex: Male

DRUGS (1)
  1. ZALEPLON [Suspect]

REACTIONS (1)
  - DRUG INEFFECTIVE [None]
